FAERS Safety Report 9056888 (Version 2)
Quarter: 2013Q1

REPORT INFORMATION
  Report Type: Spontaneous
  Country: DE (occurrence: DE)
  Receive Date: 20130201
  Receipt Date: 20130304
  Transmission Date: 20140127
  Serious: Yes (Hospitalization)
  Sender: FDA-Public Use
  Company Number: DE-GLAXOSMITHKLINE-D0078559A

PATIENT
  Age: 75 Year
  Sex: Male

DRUGS (2)
  1. DUODART [Suspect]
     Indication: BENIGN PROSTATIC HYPERPLASIA
     Dosage: .9MG IN THE MORNING
     Route: 048
     Dates: start: 201107
  2. TAMSULOSIN [Concomitant]
     Indication: BENIGN PROSTATIC HYPERPLASIA
     Route: 048
     Dates: start: 2007, end: 201107

REACTIONS (6)
  - Epilepsy [Recovered/Resolved]
  - Dizziness [Recovered/Resolved]
  - Hair colour changes [Unknown]
  - Withdrawal syndrome [Unknown]
  - Dizziness [Unknown]
  - Ataxia [Unknown]
